FAERS Safety Report 8353120-3 (Version None)
Quarter: 2012Q2

REPORT INFORMATION
  Report Type: 
  Country: None (occurrence: None)
  Receive Date: 20120511
  Receipt Date: 20101129
  Transmission Date: 20120825
  Serious: No
  Sender: FDA-Public Use
  Company Number: US-TEVA-2010006196

PATIENT
  Sex: Male
  Weight: 81.72 kg

DRUGS (6)
  1. NUVIGIL [Suspect]
     Indication: FATIGUE
     Route: 048
     Dates: start: 20101201
  2. RITALIN [Concomitant]
     Route: 048
     Dates: start: 20101110
  3. PROVIGIL [Suspect]
     Indication: FATIGUE
     Route: 048
     Dates: start: 20091101, end: 20101101
  4. XANAX [Concomitant]
     Route: 048
     Dates: start: 20101101
  5. PAIN KILLERS (UNK NAME) [Concomitant]
  6. DIAZEPAM [Concomitant]
     Route: 048
     Dates: end: 20101101

REACTIONS (2)
  - IMPAIRED DRIVING ABILITY [None]
  - FEELING ABNORMAL [None]
